FAERS Safety Report 10160729 (Version 1)
Quarter: 2014Q2

REPORT INFORMATION
  Report Type: Spontaneous
  Country: NO (occurrence: NO)
  Receive Date: 20140508
  Receipt Date: 20140508
  Transmission Date: 20141212
  Serious: Yes (Life-Threatening, Hospitalization)
  Sender: FDA-Public Use
  Company Number: NO-ASTRAZENECA-2014SE30629

PATIENT
  Age: 14 Year
  Sex: Female

DRUGS (4)
  1. PULMICORT [Suspect]
     Indication: COUGH
     Route: 055
     Dates: start: 1996, end: 2007
  2. PULMICORT [Suspect]
     Indication: COUGH
     Route: 055
     Dates: start: 1996, end: 2007
  3. PULMICORT [Suspect]
     Indication: ASTHMA
     Route: 055
     Dates: start: 1996, end: 2007
  4. INHALATION STEROIDS [Concomitant]
     Indication: COUGH

REACTIONS (8)
  - Weight decreased [Recovering/Resolving]
  - Foot deformity [Unknown]
  - Musculoskeletal discomfort [Unknown]
  - Myopathy [Recovering/Resolving]
  - Hypermobility syndrome [Recovering/Resolving]
  - Mononucleosis syndrome [Unknown]
  - Metabolic disorder [Unknown]
  - Dysphonia [Unknown]
